FAERS Safety Report 20078642 (Version 2)
Quarter: 2022Q1

REPORT INFORMATION
  Report Type: Report from Study
  Country: US (occurrence: US)
  Receive Date: 20211117
  Receipt Date: 20220222
  Transmission Date: 20220423
  Serious: No
  Sender: FDA-Public Use
  Company Number: US-TAKEDA-2021TUS069525

PATIENT
  Sex: Male
  Weight: 92.971 kg

DRUGS (1)
  1. IXAZOMIB [Suspect]
     Active Substance: IXAZOMIB
     Indication: Plasma cell myeloma
     Dosage: 4 MILLIGRAM
     Route: 048
     Dates: start: 20211015

REACTIONS (4)
  - Laboratory test normal [Unknown]
  - Skin ulcer [Unknown]
  - Myalgia [Recovered/Resolved]
  - Arthritis [Unknown]
